FAERS Safety Report 15014301 (Version 2)
Quarter: 2018Q3

REPORT INFORMATION
  Report Type: Report from Study
  Country: US (occurrence: US)
  Receive Date: 20180615
  Receipt Date: 20180711
  Transmission Date: 20181010
  Serious: Yes (Other)
  Sender: FDA-Public Use
  Company Number: US-UCBSA-2017033873

PATIENT
  Sex: Female

DRUGS (2)
  1. CERTOLIZUMAB PEGOL [Suspect]
     Active Substance: CERTOLIZUMAB PEGOL
     Dosage: 400 MG, EV 2 WEEKS(QOW)
     Dates: start: 2018
  2. CERTOLIZUMAB PEGOL [Suspect]
     Active Substance: CERTOLIZUMAB PEGOL
     Indication: ANKYLOSING SPONDYLITIS
     Dosage: 400 MG, EV 4 WEEKS
     Dates: start: 20150401, end: 2018

REACTIONS (6)
  - Intentional product misuse [Unknown]
  - Papilloma viral infection [Unknown]
  - Pre-eclampsia [Unknown]
  - Pregnancy [Unknown]
  - Cervix carcinoma [Unknown]
  - Breast feeding [Unknown]

NARRATIVE: CASE EVENT DATE: 2016
